FAERS Safety Report 9321598 (Version 1)
Quarter: 2013Q2

REPORT INFORMATION
  Report Type: Spontaneous
  Country: CA (occurrence: CA)
  Receive Date: 20130531
  Receipt Date: 20130531
  Transmission Date: 20140414
  Serious: Yes (Other)
  Sender: FDA-Public Use
  Company Number: CA-TEVA-409147USA

PATIENT
  Age: 44 Year
  Sex: Female
  Weight: 71 kg

DRUGS (7)
  1. CARBOPLATIN INJECTION 10MG/ML [Suspect]
     Route: 042
  2. CARBOPLATIN INJECTION 10MG/ML [Suspect]
     Dosage: 32.381 MILLIGRAM DAILY;
     Route: 042
  3. DEXAMETHASONE [Concomitant]
  4. LORAZEPAM [Concomitant]
  5. METOCLOPRAMIDE [Concomitant]
  6. PACLITAXEL INJECTION [Concomitant]
     Dosage: LIQUID INTRAVENOUS
  7. RANITIDINE [Concomitant]

REACTIONS (5)
  - Blood pressure decreased [Recovered/Resolved]
  - Erythema [Recovered/Resolved]
  - Heart rate increased [Recovered/Resolved]
  - Pruritus [Recovered/Resolved]
  - Vomiting [Recovered/Resolved]
